FAERS Safety Report 25036486 (Version 2)
Quarter: 2025Q2

REPORT INFORMATION
  Report Type: Spontaneous
  Country: NL (occurrence: NL)
  Receive Date: 20250304
  Receipt Date: 20250429
  Transmission Date: 20250716
  Serious: Yes (Hospitalization, Other)
  Sender: RANBAXY
  Company Number: NL-SUN PHARMACEUTICAL INDUSTRIES LTD-2025RR-497519

PATIENT
  Age: 26 Year
  Sex: Female
  Weight: 75 kg

DRUGS (7)
  1. BUPRENORPHINE [Suspect]
     Active Substance: BUPRENORPHINE
     Indication: Pain
     Route: 062
     Dates: start: 20190201
  2. DOLOPHINE [Suspect]
     Active Substance: METHADONE HYDROCHLORIDE
     Indication: Pain
     Dosage: 1X PER DAY 1 TABLET
     Route: 048
     Dates: start: 20220201
  3. MORPHINE [Suspect]
     Active Substance: MORPHINE
     Indication: Pain
     Dosage: 6 X DAILY 2 ML
     Route: 048
     Dates: start: 20240601
  4. MONTELUKAST [Suspect]
     Active Substance: MONTELUKAST
     Indication: Urticaria
     Dosage: 1X PER DAY 1 TABLET
     Route: 048
     Dates: start: 20190201
  5. LEVOCETIRIZINE [Suspect]
     Active Substance: LEVOCETIRIZINE
     Indication: Urticaria
     Dosage: 4 X DAAGS 1 TABLET
     Route: 048
     Dates: start: 20180201
  6. OMALIZUMAB [Suspect]
     Active Substance: OMALIZUMAB
     Indication: Urticaria
     Dosage: 2 INJECTIONS (150MG EACH) PER 4 WEEKS
     Route: 065
     Dates: start: 20240401
  7. OXYCODONE [Suspect]
     Active Substance: OXYCODONE
     Indication: Pain
     Dosage: UP TO 6X DAILY 1 TABLET
     Route: 048
     Dates: start: 20240401

REACTIONS (3)
  - Foetal vascular malperfusion [Unknown]
  - Foetal death [Unknown]
  - Maternal exposure during pregnancy [Unknown]

NARRATIVE: CASE EVENT DATE: 20241119
